FAERS Safety Report 8974583 (Version 1)
Quarter: 2012Q4

REPORT INFORMATION
  Report Type: 
  Country: US (occurrence: US)
  Receive Date: 20121220
  Receipt Date: 20121220
  Transmission Date: 20130627
  Serious: No
  Sender: FDA-Public Use
  Company Number: US-BAYER-2012-133513

PATIENT
  Sex: Female

DRUGS (2)
  1. ALEVE CAPLET/TABLET,MIDOL EXTENDED RELIEF CAPLET [Suspect]
     Dosage: 2 DF, UNK
     Dates: start: 2012
  2. DIGOXIN [Concomitant]

REACTIONS (2)
  - Dizziness [None]
  - Vision blurred [None]
